FAERS Safety Report 10163993 (Version 1)
Quarter: 2014Q2

REPORT INFORMATION
  Report Type: Spontaneous
  Country: US (occurrence: US)
  Receive Date: 20140510
  Receipt Date: 20140510
  Transmission Date: 20141212
  Serious: No
  Sender: FDA-Public Use
  Company Number: US-BRISTOL-MYERS SQUIBB COMPANY-19789650

PATIENT
  Age: 74 Year
  Sex: Male
  Weight: 79.36 kg

DRUGS (6)
  1. BYDUREON [Suspect]
     Indication: TYPE 2 DIABETES MELLITUS
     Dates: start: 201202
  2. BYETTA [Suspect]
  3. METFORMIN [Concomitant]
     Route: 048
  4. CRESTOR [Concomitant]
  5. FINASTERIDE [Concomitant]
  6. FLOMAX [Concomitant]

REACTIONS (3)
  - Incorrect dose administered by device [Recovered/Resolved]
  - Product quality issue [Recovered/Resolved]
  - Glycosylated haemoglobin increased [Recovered/Resolved]
